FAERS Safety Report 24566334 (Version 2)
Quarter: 2024Q4

REPORT INFORMATION
  Report Type: Spontaneous
  Country: JP (occurrence: JP)
  Receive Date: 20241030
  Receipt Date: 20241204
  Transmission Date: 20250115
  Serious: No
  Sender: EISAI
  Company Number: JP-Eisai-202409377_LEN-HCC_P_1

PATIENT
  Age: 74 Year
  Sex: Male

DRUGS (1)
  1. LENVATINIB [Suspect]
     Active Substance: LENVATINIB
     Indication: Hepatocellular carcinoma
     Dosage: DOSE AND FREQUENCY UNKNOWN
     Route: 048

REACTIONS (1)
  - Back pain [Unknown]
